FAERS Safety Report 24238198 (Version 1)
Quarter: 2024Q3

REPORT INFORMATION
  Report Type: Spontaneous
  Country: US (occurrence: None)
  Receive Date: 20240821
  Receipt Date: 20240821
  Transmission Date: 20241017
  Serious: Yes (Other)
  Sender: Public
  Company Number: None

PATIENT
  Age: 71 Year
  Sex: Female
  Weight: 60.75 kg

DRUGS (6)
  1. OSIMERTINIB [Suspect]
     Active Substance: OSIMERTINIB
     Indication: Non-small cell lung cancer
     Dosage: 1 TABLET DAILY ORAL
     Route: 048
     Dates: start: 20230223
  2. OSI [Concomitant]
  3. ELIQUIS [Concomitant]
     Active Substance: APIXABAN
  4. MAGNESIUM [Concomitant]
     Active Substance: MAGNESIUM
  5. CA [Concomitant]
  6. VITAMIN D NOS [Concomitant]
     Active Substance: CHOLECALCIFEROL\ERGOCALCIFEROL

REACTIONS (6)
  - Urticaria [None]
  - Muscle spasms [None]
  - Tetany [None]
  - Sleep disorder [None]
  - Quality of life decreased [None]
  - Discomfort [None]

NARRATIVE: CASE EVENT DATE: 20240601
